FAERS Safety Report 7721013-8 (Version None)
Quarter: 2011Q3

REPORT INFORMATION
  Report Type: 
  Country: None (occurrence: None)
  Receive Date: 20110830
  Receipt Date: 20110830
  Transmission Date: 20111222
  Serious: Yes (Other)
  Sender: FDA-Public Use
  Company Number: None

PATIENT
  Sex: Female
  Weight: 63.5036 kg

DRUGS (1)
  1. NITROFURANTOIN100MG CAP (MACRABID) [Suspect]
     Indication: URINARY TRACT INFECTION
     Dosage: 1 BID
     Dates: start: 20110708, end: 20110714

REACTIONS (5)
  - THERMAL BURN [None]
  - DRUG INTERACTION [None]
  - PRURITUS GENERALISED [None]
  - RASH GENERALISED [None]
  - VULVOVAGINAL PRURITUS [None]
